FAERS Safety Report 6109335-8 (Version None)
Quarter: 2009Q1

REPORT INFORMATION
  Report Type: 
  Country: None (occurrence: None)
  Receive Date: 20090309
  Receipt Date: 20090309
  Transmission Date: 20090719
  Serious: Yes (Death)
  Sender: FDA-Public Use
  Company Number: None

PATIENT
  Age: 75 Year
  Sex: Female
  Weight: 92.2 kg

DRUGS (11)
  1. ABILIFY [Suspect]
     Indication: BIPOLAR DISORDER
     Dosage: 0-30 MG PO DAILY
     Route: 048
     Dates: start: 20080620
  2. SEROQUEL [Suspect]
     Dosage: 400MG PO QHS
     Route: 048
     Dates: start: 20081104
  3. TRAZODONE HCL [Concomitant]
  4. WELLBUTRIN [Concomitant]
  5. MILK OF MAGNESIA [Concomitant]
  6. VICODIN [Concomitant]
  7. MYLANTA [Concomitant]
  8. TYLENOL [Concomitant]
  9. KETOCONAZOLE [Concomitant]
  10. LISINOPRIL [Concomitant]
  11. OMEPRAZOLE [Concomitant]

REACTIONS (1)
  - LOSS OF CONSCIOUSNESS [None]
